FAERS Safety Report 6669321-6 (Version None)
Quarter: 2010Q2

REPORT INFORMATION
  Report Type: 
  Country: None (occurrence: None)
  Receive Date: 20100402
  Receipt Date: 20100322
  Transmission Date: 20101027
  Serious: Yes (Other)
  Sender: FDA-Public Use
  Company Number: 200903738

PATIENT
  Age: 65 Year
  Sex: Female

DRUGS (7)
  1. VELCADE [Suspect]
     Indication: MULTIPLE MYELOMA
  2. DOXORUBICIN HCL [Suspect]
     Indication: MULTIPLE MYELOMA
  3. ACTOPLUS MET (METFORMIN HYDROCHLORIDE, PIOGLITAZONE HYDROCHLORIDE) [Concomitant]
  4. JANUVIA [Concomitant]
  5. LIPITOR [Concomitant]
  6. AREDIA [Concomitant]
  7. PREMARIN [Concomitant]

REACTIONS (2)
  - CATARACT [None]
  - OPTIC ISCHAEMIC NEUROPATHY [None]
